FAERS Safety Report 21635060 (Version 1)
Quarter: 2022Q4

REPORT INFORMATION
  Report Type: Spontaneous
  Country: ES (occurrence: ES)
  Receive Date: 20221123
  Receipt Date: 20221123
  Transmission Date: 20230113
  Serious: Yes (Other)
  Sender: FDA-Public Use
  Company Number: ES-MYLANLABS-2022M1130597

PATIENT
  Age: 34 Year
  Sex: Female

DRUGS (1)
  1. ARIXTRA [Suspect]
     Active Substance: FONDAPARINUX SODIUM
     Indication: Thrombosis prophylaxis
     Dosage: 2.5 MILLIGRAM, QD
     Route: 065

REACTIONS (3)
  - Stillbirth [Unknown]
  - Foetal vascular malperfusion [Unknown]
  - Maternal exposure during pregnancy [Recovered/Resolved]
